FAERS Safety Report 9820146 (Version 1)
Quarter: 2013Q4

REPORT INFORMATION
  Report Type: Spontaneous
  Country: US (occurrence: None)
  Receive Date: 20131018
  Receipt Date: 20131018
  Transmission Date: 20140711
  Serious: Yes (Other)
  Sender: FDA-Public Use
  Company Number: 1621176

PATIENT
  Age: 62 Year
  Sex: Male

DRUGS (2)
  1. VANCOMYCIN HCL FOR INJECTION USP, 1 G IN ADD-VANTAGE VIAL (VANCOMYCIN HYDROCHLORIDE) [Suspect]
     Indication: PRODUCT USED FOR UNKNOWN INDICATION
     Dosage: 1 G GRAM(S), 1 HOUR
     Dates: start: 2000
  2. DEXTROSE IN WATER [Concomitant]

REACTIONS (1)
  - Renal failure [None]
